FAERS Safety Report 5862520-2 (Version None)
Quarter: 2008Q3

REPORT INFORMATION
  Report Type: 
  Country: None (occurrence: None)
  Receive Date: 20080827
  Receipt Date: 20080827
  Transmission Date: 20090109
  Serious: Yes (Hospitalization, Disabling)
  Sender: FDA-Public Use
  Company Number: None

PATIENT
  Age: 23 Year
  Sex: Female
  Weight: 81.6475 kg

DRUGS (1)
  1. MIRENA [Suspect]
     Indication: CONTRACEPTION
     Dosage: VAG
     Route: 067

REACTIONS (6)
  - ABDOMINAL PAIN LOWER [None]
  - HAEMORRHAGE [None]
  - NAUSEA [None]
  - PAIN [None]
  - SYNCOPE [None]
  - VOMITING [None]
